APPROVED DRUG PRODUCT: ACETAMINOPHEN
Active Ingredient: ACETAMINOPHEN
Strength: 650MG
Dosage Form/Route: TABLET, EXTENDED RELEASE;ORAL
Application: A076200 | Product #001
Applicant: OHM LABORATORIES INC
Approved: Mar 19, 2002 | RLD: No | RS: No | Type: OTC